FAERS Safety Report 20601721 (Version 3)
Quarter: 2022Q3

REPORT INFORMATION
  Report Type: Spontaneous
  Country: JP (occurrence: JP)
  Receive Date: 20220316
  Receipt Date: 20220715
  Transmission Date: 20221027
  Serious: No
  Sender: FDA-Public Use
  Company Number: JP-GLAXOSMITHKLINE-JP2022JPN044480

PATIENT

DRUGS (9)
  1. SOTROVIMAB [Suspect]
     Active Substance: SOTROVIMAB
     Indication: COVID-19
     Dosage: 500 MG, SINGLE
     Dates: start: 20220210
  2. VEKLURY [Suspect]
     Active Substance: REMDESIVIR
     Indication: COVID-19
     Dosage: 200 MG FOR THE FIRST DAY, 100 MG FOR THE SECOND AND THIRD DAY, DOSING NUMBER: 3
     Dates: start: 20220209, end: 20220211
  3. FAMOTIDINE OD TABLETS [Concomitant]
     Indication: Gastric ulcer
     Dosage: 20 MG, QD, AFTER LUNCH
  4. OLMESARTAN OD TABLETS [Concomitant]
     Indication: Hypertension
     Dosage: 20 MG, QD, AFTER LUNCH
  5. MAGNESIUM OXIDE [Concomitant]
     Active Substance: MAGNESIUM OXIDE
     Indication: Constipation
     Dosage: 330 MG, TID, AFTER BREAKFAST, LUNCH, AND DINNER
  6. PREDNISOLONE [Concomitant]
     Active Substance: PREDNISOLONE
     Indication: Pemphigoid
     Dosage: 3 MG, QD, AFTER LUNCH
  7. ACETAMINOPHEN [Concomitant]
     Active Substance: ACETAMINOPHEN
     Indication: Pyrexia
     Dosage: 400 MG
     Dates: start: 20220208, end: 20220209
  8. SENNOSIDES [Concomitant]
     Active Substance: SENNOSIDES
     Indication: Constipation
     Dosage: 24 MG
  9. PETROLATUM [Concomitant]
     Active Substance: PETROLATUM
     Dosage: UNK, QD, APPLYING

REACTIONS (3)
  - Aspartate aminotransferase increased [Recovered/Resolved]
  - Blood lactate dehydrogenase increased [Recovered/Resolved]
  - Blood creatine phosphokinase increased [Recovered/Resolved]

NARRATIVE: CASE EVENT DATE: 20220210
